FAERS Safety Report 25841288 (Version 1)
Quarter: 2025Q3

REPORT INFORMATION
  Report Type: Spontaneous
  Country: EU (occurrence: EU)
  Receive Date: 20250924
  Receipt Date: 20250924
  Transmission Date: 20251020
  Serious: Yes (Death, Life-Threatening, Hospitalization)
  Sender: PFIZER
  Company Number: None

PATIENT
  Age: 75 Year
  Sex: Male
  Weight: 76 kg

DRUGS (25)
  1. PIPERACILLIN SODIUM\TAZOBACTAM SODIUM [Suspect]
     Active Substance: PIPERACILLIN SODIUM\TAZOBACTAM SODIUM
     Indication: Peritonitis
     Dosage: 1 DF, 1X/DAY, 16G/4G
     Route: 042
     Dates: start: 20240815, end: 20240827
  2. PIPERACILLIN SODIUM\TAZOBACTAM SODIUM [Suspect]
     Active Substance: PIPERACILLIN SODIUM\TAZOBACTAM SODIUM
     Dosage: 1 DF, 1X/DAY, 16G/4G
     Route: 042
     Dates: start: 20240904, end: 20241001
  3. PIPERACILLIN SODIUM\TAZOBACTAM SODIUM [Suspect]
     Active Substance: PIPERACILLIN SODIUM\TAZOBACTAM SODIUM
     Dosage: 1 DF, 1X/DAY, 16G/4G
     Route: 042
     Dates: start: 20241203, end: 20241210
  4. FLUCONAZOLE [Suspect]
     Active Substance: FLUCONAZOLE
     Indication: Peritonitis
     Route: 042
     Dates: start: 20240927, end: 20240927
  5. FLUCONAZOLE [Suspect]
     Active Substance: FLUCONAZOLE
     Route: 042
     Dates: start: 20240928, end: 20241001
  6. FLUCONAZOLE [Suspect]
     Active Substance: FLUCONAZOLE
     Route: 048
     Dates: start: 20241002, end: 20241003
  7. LINEZOLID [Concomitant]
     Active Substance: LINEZOLID
     Indication: Peritonitis
     Dosage: 600 MG, 2X/DAY
     Route: 042
     Dates: start: 20240927, end: 20241002
  8. LINEZOLID [Concomitant]
     Active Substance: LINEZOLID
     Dosage: 600 MG, 2X/DAY
     Route: 048
     Dates: start: 20241002, end: 20241016
  9. KARDEGIC [Concomitant]
     Active Substance: ASPIRIN DL-LYSINE
     Indication: Cardiovascular event prophylaxis
     Dosage: 75 MG, 1X/DAY
     Route: 048
  10. AMLODIPINE [Concomitant]
     Active Substance: AMLODIPINE BESYLATE
     Indication: Hypertension
     Dosage: 10 MG, 1X/DAY
     Route: 048
  11. BISOPROLOL FUMARATE [Concomitant]
     Active Substance: BISOPROLOL FUMARATE
     Indication: Hypertension
     Dosage: 1.25 MG, 1X/DAY
     Route: 048
  12. FLUDROCORTISONE ACETATE [Concomitant]
     Active Substance: FLUDROCORTISONE ACETATE
     Indication: Adrenalectomy
     Dosage: 100 UG, 1X/DAY
     Route: 048
  13. HYDROCORTISONE [Concomitant]
     Active Substance: HYDROCORTISONE
     Dosage: 30 MG, DAILY, EVERY 8 HOURS
     Route: 048
  14. LEVOTHYROXINE [Concomitant]
     Active Substance: LEVOTHYROXINE
     Indication: Thyroidectomy
     Dosage: 100 UG, 1X/DAY
     Route: 048
  15. PANTOPRAZOLE [Concomitant]
     Active Substance: PANTOPRAZOLE
     Indication: Gastrooesophageal reflux disease
     Dosage: 40 MG, 1X/DAY
     Route: 048
     Dates: end: 20240909
  16. PANTOPRAZOLE [Concomitant]
     Active Substance: PANTOPRAZOLE
     Dosage: 40 MG, 1X/DAY
     Route: 042
     Dates: start: 20240910
  17. POTASSIUM CHLORIDE [Concomitant]
     Active Substance: POTASSIUM CHLORIDE
     Indication: Mineral supplementation
     Dosage: 1200 MG, 3X/DAY
     Route: 048
  18. SILODOSIN [Concomitant]
     Active Substance: SILODOSIN
     Indication: Benign prostatic hyperplasia
     Dosage: 4 MG, 1X/DAY
     Route: 048
  19. INSULIN ASPART [Concomitant]
     Active Substance: INSULIN ASPART
     Indication: Insulin-requiring type 2 diabetes mellitus
     Dosage: 1 DF, 3X/DAY, ACCORDING TO THE GLYCEMIA
     Route: 058
  20. INSULIN GLARGINE [Concomitant]
     Active Substance: INSULIN GLARGINE
     Indication: Insulin-requiring type 2 diabetes mellitus
     Dosage: 8 IU, 1X/DAY
     Route: 058
  21. LOVENOX [Concomitant]
     Active Substance: ENOXAPARIN SODIUM
     Indication: Cardiovascular event prophylaxis
     Dosage: 8000 IU, 1X/DAY
     Route: 058
     Dates: start: 20240815, end: 20240827
  22. LOVENOX [Concomitant]
     Active Substance: ENOXAPARIN SODIUM
     Dosage: 4000 IU, 1X/DAY
     Route: 058
     Dates: start: 20240828, end: 20240910
  23. LOVENOX [Concomitant]
     Active Substance: ENOXAPARIN SODIUM
     Dosage: 6000 IU, 1X/DAY
     Route: 058
     Dates: start: 20240911, end: 20240912
  24. LOVENOX [Concomitant]
     Active Substance: ENOXAPARIN SODIUM
     Dosage: 8000 IU, 1X/DAY
     Route: 058
     Dates: start: 20240913
  25. TRAMADOL HCL [Concomitant]
     Active Substance: TRAMADOL HYDROCHLORIDE
     Indication: Pain
     Route: 048

REACTIONS (11)
  - Cholestasis [Fatal]
  - Hepatic cytolysis [Fatal]
  - Cardio-respiratory arrest [Fatal]
  - Cardiac failure acute [Fatal]
  - Sepsis [Fatal]
  - Systemic candida [Fatal]
  - Arrhythmia [Fatal]
  - Ischaemia [Fatal]
  - Acute respiratory failure [Fatal]
  - Pneumonia aspiration [Fatal]
  - Liver disorder [Recovered/Resolved]

NARRATIVE: CASE EVENT DATE: 20240904
